FAERS Safety Report 6203955-8 (Version None)
Quarter: 2009Q2

REPORT INFORMATION
  Report Type: 
  Country: None (occurrence: None)
  Receive Date: 20090527
  Receipt Date: 20090519
  Transmission Date: 20091009
  Serious: Yes (Hospitalization)
  Sender: FDA-Public Use
  Company Number: B0562689A

PATIENT
  Sex: Male

DRUGS (2)
  1. REQUIP [Suspect]
     Indication: PARKINSON'S DISEASE
     Route: 048
     Dates: start: 20090125
  2. CARBIDOPA AND LEVODOPA [Concomitant]
     Route: 048

REACTIONS (6)
  - CARDIAC FAILURE [None]
  - DEHYDRATION [None]
  - DYSPNOEA [None]
  - HYPOTHYROIDISM [None]
  - OEDEMA PERIPHERAL [None]
  - PERICARDIAL EFFUSION [None]
